FAERS Safety Report 24435799 (Version 1)
Quarter: 2024Q4

REPORT INFORMATION
  Report Type: Spontaneous
  Country: CN (occurrence: CN)
  Receive Date: 20241015
  Receipt Date: 20241015
  Transmission Date: 20250115
  Serious: Yes (Hospitalization, Other)
  Sender: SANOFI AVENTIS
  Company Number: CN-SA-2024SA292365

PATIENT
  Age: 72 Year
  Sex: Female
  Weight: 58 kg

DRUGS (8)
  1. OXALIPLATIN [Suspect]
     Active Substance: OXALIPLATIN
     Indication: Rectal cancer stage II
     Dosage: 150 MG, Q3W
     Route: 041
     Dates: start: 20240303, end: 20240303
  2. OXALIPLATIN [Suspect]
     Active Substance: OXALIPLATIN
     Dosage: 150 MG, Q3W
     Route: 041
     Dates: start: 20240324, end: 20240324
  3. OXALIPLATIN [Suspect]
     Active Substance: OXALIPLATIN
     Dosage: 150 MG, Q3W
     Route: 041
     Dates: start: 20240414, end: 20240414
  4. OXALIPLATIN [Suspect]
     Active Substance: OXALIPLATIN
     Dosage: 150 MG, Q3W
     Route: 041
     Dates: start: 20240505, end: 20240505
  5. CAPECITABINE [Concomitant]
     Active Substance: CAPECITABINE
     Indication: Rectal cancer stage II
     Dosage: 1.5 G, BID, D1-14
     Route: 048
     Dates: start: 20240303, end: 20240303
  6. CAPECITABINE [Concomitant]
     Active Substance: CAPECITABINE
     Dosage: 1.5 G, BID, D1-14
     Route: 048
     Dates: start: 20240324, end: 20240324
  7. CAPECITABINE [Concomitant]
     Active Substance: CAPECITABINE
     Dosage: 1.5 G, BID, D1-14
     Route: 048
     Dates: start: 20240414, end: 20240414
  8. CAPECITABINE [Concomitant]
     Active Substance: CAPECITABINE
     Dosage: 1.5 G, BID, D1-14
     Route: 048
     Dates: start: 20240505, end: 20240505

REACTIONS (6)
  - Tongue discolouration [Unknown]
  - Pulse abnormal [Unknown]
  - Myelosuppression [Recovering/Resolving]
  - Platelet count decreased [Recovering/Resolving]
  - Anaemia [Recovering/Resolving]
  - Asthenia [Unknown]

NARRATIVE: CASE EVENT DATE: 20240522
